FAERS Safety Report 14926017 (Version 1)
Quarter: 2018Q2

REPORT INFORMATION
  Report Type: Report from Study
  Country: US (occurrence: US)
  Receive Date: 20180522
  Receipt Date: 20180522
  Transmission Date: 20180711
  Serious: Yes (Other)
  Sender: FDA-Public Use
  Company Number: US-AMGEN-USASP2018065929

PATIENT
  Age: 86 Year
  Sex: Female

DRUGS (2)
  1. ENBREL [Suspect]
     Active Substance: ETANERCEPT
     Indication: RHEUMATOID ARTHRITIS
     Dosage: UNK
     Route: 065
  2. PROLIA [Suspect]
     Active Substance: DENOSUMAB
     Indication: RHEUMATOID ARTHRITIS
     Dosage: UNK
     Route: 065

REACTIONS (8)
  - Rib fracture [Unknown]
  - Urinary tract infection [Unknown]
  - Arthropathy [Unknown]
  - Hearing aid user [Unknown]
  - Infection [Unknown]
  - Lower limb fracture [Unknown]
  - Concussion [Unknown]
  - Fall [Unknown]

NARRATIVE: CASE EVENT DATE: 2016
